FAERS Safety Report 8010069-3 (Version None)
Quarter: 2011Q4

REPORT INFORMATION
  Report Type: 
  Country: None (occurrence: None)
  Receive Date: 20111228
  Receipt Date: 20111221
  Transmission Date: 20120403
  Serious: Yes (Hospitalization)
  Sender: FDA-Public Use
  Company Number: ES-BRISTOL-MYERS SQUIBB COMPANY-13455910

PATIENT
  Age: 62 Year
  Sex: Male
  Weight: 88 kg

DRUGS (10)
  1. FLUTICASONE PROPIONATE [Concomitant]
     Route: 055
     Dates: start: 20060511
  2. GELOCATIL [Concomitant]
     Route: 048
     Dates: start: 20060511
  3. BOI K [Concomitant]
     Route: 048
     Dates: start: 20060511
  4. CARBOPLATIN [Suspect]
     Indication: NON-SMALL CELL LUNG CANCER
     Route: 042
     Dates: start: 20060525
  5. OMEPRAZOLE [Concomitant]
     Route: 048
     Dates: start: 20060511
  6. LORAZEPAM [Concomitant]
     Route: 048
     Dates: start: 20060511
  7. FUROSEMIDE [Concomitant]
     Route: 048
     Dates: start: 20060511
  8. METAMIZOLE [Concomitant]
     Route: 048
     Dates: start: 20060511
  9. TIOPRONIN [Concomitant]
     Route: 055
     Dates: start: 20060511
  10. PACLITAXEL [Suspect]
     Indication: NON-SMALL CELL LUNG CANCER
     Route: 042
     Dates: start: 20060525

REACTIONS (4)
  - RESPIRATORY FAILURE [None]
  - PURPURA [None]
  - CHEST PAIN [None]
  - PYREXIA [None]
